FAERS Safety Report 15180211 (Version 9)
Quarter: 2019Q3

REPORT INFORMATION
  Report Type: Report from Study
  Country: GB (occurrence: GB)
  Receive Date: 20180723
  Receipt Date: 20190923
  Transmission Date: 20191004
  Serious: Yes (Hospitalization, Other)
  Sender: FDA-Public Use
  Company Number: GB-BRISTOL-MYERS SQUIBB COMPANY-BMS-2017-037788

PATIENT
  Sex: Female

DRUGS (3)
  1. ABATACEPT [Suspect]
     Active Substance: ABATACEPT
     Indication: PSORIATIC ARTHROPATHY
     Route: 065
  2. ABATACEPT [Suspect]
     Active Substance: ABATACEPT
     Indication: RHEUMATOID ARTHRITIS
     Dosage: 125 MILLIGRAM, QWK
     Route: 058
     Dates: start: 20160303
  3. METHOTREXATE. [Concomitant]
     Active Substance: METHOTREXATE
     Indication: RHEUMATOID ARTHRITIS
     Dosage: 10 MILLIGRAM, QWK
     Route: 065

REACTIONS (14)
  - Infection [Unknown]
  - Urinary incontinence [Unknown]
  - Lower respiratory tract infection [Unknown]
  - Tooth abscess [Unknown]
  - Off label use [Unknown]
  - Lichenoid keratosis [Unknown]
  - Urinary tract infection [Unknown]
  - Dementia [Unknown]
  - Arthropathy [Unknown]
  - Joint swelling [Unknown]
  - Actinic keratosis [Unknown]
  - Neoplasm malignant [Unknown]
  - Photodermatosis [Unknown]
  - Product dose omission [Unknown]
